FAERS Safety Report 4693413-4 (Version None)
Quarter: 2005Q2

REPORT INFORMATION
  Report Type: 
  Country: None (occurrence: None)
  Receive Date: 20050617
  Receipt Date: 20050603
  Transmission Date: 20051028
  Serious: Yes (Hospitalization)
  Sender: FDA-Public Use
  Company Number: JP-BRISTOL-MYERS SQUIBB COMPANY-12999728

PATIENT
  Age: 42 Year
  Sex: Female

DRUGS (2)
  1. MITOMYCIN-C [Suspect]
     Indication: OVARIAN CANCER
     Dosage: PRIOR DOSES ON 22-OCT-2003-24-DEC-2003 IV, 11 MG AND 12-MAR-2004 TO 12-MAR-2004 IV, 9 MG.
     Route: 042
     Dates: start: 20040412, end: 20040412
  2. TOPOTECIN [Concomitant]
     Dosage: PRIOR DOSES ON 22-OCT-2003-24-DEC-2003 IV, 190 MG AND 12-MAR-2004-12-MAR-2004 IV, 156 MG.
     Route: 042
     Dates: start: 20040412, end: 20040412

REACTIONS (1)
  - HAEMOLYTIC ANAEMIA [None]
